FAERS Safety Report 5380847-8 (Version None)
Quarter: 2007Q3

REPORT INFORMATION
  Report Type: 
  Country: None (occurrence: None)
  Receive Date: 20070706
  Receipt Date: 20070703
  Transmission Date: 20080115
  Serious: Yes (Hospitalization, Other)
  Sender: FDA-Public Use
  Company Number: US-ASTRAZENECA-2007UW14198

PATIENT
  Age: 18 Year
  Sex: Male

DRUGS (7)
  1. SEROQUEL [Suspect]
     Indication: AFFECTIVE DISORDER
     Route: 048
     Dates: start: 20061101, end: 20070501
  2. SEROQUEL [Suspect]
     Route: 048
     Dates: end: 20070608
  3. SEROQUEL [Suspect]
     Route: 048
     Dates: start: 20070608
  4. DEPAKOTE [Concomitant]
     Dates: end: 20070501
  5. TENEX [Concomitant]
     Route: 048
  6. LOPRESSOR [Concomitant]
     Route: 048
  7. PROTONIX [Concomitant]
     Route: 048

REACTIONS (4)
  - AGITATION [None]
  - AGRANULOCYTOSIS [None]
  - COMA [None]
  - MENTAL STATUS CHANGES [None]
